FAERS Safety Report 15983673 (Version 1)
Quarter: 2019Q1

REPORT INFORMATION
  Report Type: Spontaneous
  Country: NL (occurrence: NL)
  Receive Date: 20190220
  Receipt Date: 20190220
  Transmission Date: 20190418
  Serious: Yes (Other)
  Sender: FDA-Public Use
  Company Number: NL-TEVA-2019-NL-1014880

PATIENT
  Sex: Male
  Weight: 90 kg

DRUGS (2)
  1. KINECTEEN [Suspect]
     Active Substance: METHYLPHENIDATE
     Indication: ATTENTION DEFICIT/HYPERACTIVITY DISORDER
     Dosage: 1 DAILY DOSE: 54 MG + 18 MG= 72 MG; THE EVENT BEGAN AFTER 30H FROM THE FIRST DOSE
     Dates: start: 20190119, end: 20190121
  2. KINECTEEN [Suspect]
     Active Substance: METHYLPHENIDATE
     Dosage: 1 DAILY DOSE: 54 MG + 18 MG= 72 MG; THE EVENT BEGAN AFTER 30H FROM THE FIRST DOSE
     Dates: start: 20190119, end: 20190121

REACTIONS (5)
  - Overdose [Recovered/Resolved]
  - Laryngeal oedema [Recovered/Resolved]
  - Therapeutic response unexpected [Recovering/Resolving]
  - Dyspnoea [Recovered/Resolved]
  - Rash [Recovering/Resolving]
